FAERS Safety Report 9086116 (Version 1)
Quarter: 2013Q1

REPORT INFORMATION
  Report Type: Spontaneous
  Country: DE (occurrence: DE)
  Receive Date: 20130218
  Receipt Date: 20130218
  Transmission Date: 20140127
  Serious: Yes (Life-Threatening, Hospitalization)
  Sender: FDA-Public Use
  Company Number: DE-AMGEN-DEUSP2013009948

PATIENT
  Age: 76 Year
  Sex: Female

DRUGS (11)
  1. ENBREL [Suspect]
     Indication: RHEUMATOID ARTHRITIS
     Dosage: 50 MG, WEEKLY
     Dates: start: 20081202, end: 20121129
  2. ENBREL [Suspect]
     Dosage: UNK UNK, UNK
  3. ACETYLSALICYLIC ACID [Concomitant]
     Dosage: UNK UNK, UNK
  4. CLOPIDOGREL [Concomitant]
     Dosage: UNK UNK, UNK
  5. METOPROLOL [Concomitant]
     Dosage: UNK UNK, UNK
  6. AMLODIPINE [Concomitant]
     Dosage: UNK UNK, UNK
  7. EDARBI [Concomitant]
     Dosage: UNK UNK, UNK
  8. TORASEMIDE [Concomitant]
     Dosage: UNK UNK, UNK
  9. SIMVASTATIN [Concomitant]
     Dosage: UNK UNK, UNK
  10. PANTOPRAZOL [Concomitant]
     Dosage: UNK UNK, UNK
  11. L-THYROXIN [Concomitant]
     Dosage: UNK UNK, UNK

REACTIONS (1)
  - Myocardial infarction [Recovered/Resolved with Sequelae]
